FAERS Safety Report 8242610-X (Version None)
Quarter: 2012Q1

REPORT INFORMATION
  Report Type: 
  Country: None (occurrence: None)
  Receive Date: 20120329
  Receipt Date: 20120326
  Transmission Date: 20120608
  Serious: Yes (Other)
  Sender: FDA-Public Use
  Company Number: PHEH2009US08867

PATIENT
  Sex: Male
  Weight: 95.692 kg

DRUGS (11)
  1. AMBIEN [Concomitant]
  2. ZOMETA [Suspect]
     Indication: OSTEOPOROSIS
  3. ZOMETA [Suspect]
     Indication: BONE LOSS
     Dosage: UNK UKN, UNK
     Route: 042
  4. CELEXA [Concomitant]
  5. AREDIA [Suspect]
     Indication: OSTEOPOROSIS
  6. ASPIRIN [Concomitant]
  7. VELCADE [Concomitant]
  8. AREDIA [Suspect]
     Indication: BONE LOSS
     Dosage: UNK UKN, UNK
     Route: 042
  9. PLAVIX [Concomitant]
  10. DECADRON [Concomitant]
  11. NEXIUM [Concomitant]

REACTIONS (58)
  - PAIN [None]
  - HYPOGAMMAGLOBULINAEMIA [None]
  - CYST RUPTURE [None]
  - BACTERIAL INFECTION [None]
  - PYREXIA [None]
  - CHEST DISCOMFORT [None]
  - SINUS HEADACHE [None]
  - INJURY [None]
  - MITRAL VALVE CALCIFICATION [None]
  - DILATATION ATRIAL [None]
  - CHEST PAIN [None]
  - PNEUMONIA [None]
  - CORONARY ARTERY DISEASE [None]
  - LYMPHADENITIS [None]
  - SPUTUM INCREASED [None]
  - BASAL CELL CARCINOMA [None]
  - DYSPNOEA [None]
  - ASTHMA [None]
  - OEDEMA PERIPHERAL [None]
  - DISABILITY [None]
  - CARDIAC DISORDER [None]
  - PLEURAL EFFUSION [None]
  - ATELECTASIS [None]
  - COMPRESSION FRACTURE [None]
  - COUGH [None]
  - FACET JOINT SYNDROME [None]
  - INCREASED TENDENCY TO BRUISE [None]
  - ARTERIOSCLEROSIS CORONARY ARTERY [None]
  - AORTIC ARTERIOSCLEROSIS [None]
  - BLOOD CHOLESTEROL INCREASED [None]
  - BRONCHITIS [None]
  - ANXIETY [None]
  - MULTIPLE MYELOMA [None]
  - MYOCARDIAL INFARCTION [None]
  - DEPRESSION [None]
  - NECK MASS [None]
  - DERMATITIS [None]
  - DILATATION VENTRICULAR [None]
  - DYSPNOEA EXERTIONAL [None]
  - BONE NEOPLASM [None]
  - SINUSITIS [None]
  - OSTEOMYELITIS [None]
  - CELLULITIS [None]
  - IMMUNODEFICIENCY [None]
  - NEOPLASM MALIGNANT [None]
  - JOINT DISLOCATION [None]
  - JOINT INJURY [None]
  - OROPHARYNGEAL PAIN [None]
  - VISION BLURRED [None]
  - FATIGUE [None]
  - BACK PAIN [None]
  - DIZZINESS [None]
  - OSTEONECROSIS OF JAW [None]
  - OSTEOPENIA [None]
  - RENAL CYST [None]
  - SKIN ULCER [None]
  - DIVERTICULITIS [None]
  - ROTATOR CUFF SYNDROME [None]
